FAERS Safety Report 6740256-3 (Version None)
Quarter: 2010Q2

REPORT INFORMATION
  Report Type: 
  Country: None (occurrence: None)
  Receive Date: 20100525
  Receipt Date: 20100421
  Transmission Date: 20101027
  Serious: Yes (Hospitalization)
  Sender: FDA-Public Use
  Company Number: JP-MERCK-1004USA03824

PATIENT
  Age: 78 Year
  Sex: Male

DRUGS (8)
  1. JANUVIA [Suspect]
     Indication: TYPE 2 DIABETES MELLITUS
     Route: 048
     Dates: start: 20100212, end: 20100221
  2. BUFFERIN [Concomitant]
     Route: 065
  3. RENIVACE [Concomitant]
     Route: 065
  4. AMARYL [Suspect]
     Route: 048
  5. FLUITRAN [Concomitant]
     Route: 065
  6. METFORMIN HCL [Suspect]
     Route: 048
  7. SIGMART [Concomitant]
     Route: 065
  8. ACTOS [Suspect]
     Route: 048

REACTIONS (1)
  - HYPOGLYCAEMIC COMA [None]
